FAERS Safety Report 20264805 (Version 1)
Quarter: 2021Q4

REPORT INFORMATION
  Report Type: Report from Study
  Country: CL (occurrence: CL)
  Receive Date: 20211231
  Receipt Date: 20211231
  Transmission Date: 20220303
  Serious: Yes (Other)
  Sender: FDA-Public Use
  Company Number: CL-JNJFOC-20211252936

PATIENT
  Age: 39 Year
  Sex: Female

DRUGS (1)
  1. SIMPONI [Suspect]
     Active Substance: GOLIMUMAB
     Indication: Rheumatoid arthritis
     Route: 058
     Dates: start: 20211116

REACTIONS (3)
  - Hypertension [Not Recovered/Not Resolved]
  - Haemorrhage [Unknown]
  - Dental caries [Unknown]

NARRATIVE: CASE EVENT DATE: 20211201
